FAERS Safety Report 7421189-6 (Version None)
Quarter: 2011Q2

REPORT INFORMATION
  Report Type: 
  Country: None (occurrence: None)
  Receive Date: 20110418
  Receipt Date: 20110414
  Transmission Date: 20111010
  Serious: Yes (Hospitalization)
  Sender: FDA-Public Use
  Company Number: JP-ABBOTT-11P-087-0719175-00

PATIENT
  Age: 76 Year
  Sex: Female

DRUGS (5)
  1. KLARICID TABLETS [Suspect]
     Indication: NASOPHARYNGITIS
     Route: 048
     Dates: start: 20110409, end: 20110413
  2. MUCOSTA [Concomitant]
     Indication: PRODUCT USED FOR UNKNOWN INDICATION
     Dosage: 300 MG DAILY
     Route: 048
     Dates: start: 20110409, end: 20110413
  3. MUCOSIL-10 [Concomitant]
     Indication: PRODUCT USED FOR UNKNOWN INDICATION
     Dosage: 45 MG DAILY
     Route: 048
     Dates: start: 20110409, end: 20110413
  4. LOXONIN [Concomitant]
     Indication: PRODUCT USED FOR UNKNOWN INDICATION
     Dosage: 180 MG DAILY
     Route: 048
     Dates: start: 20110409, end: 20110413
  5. RESPLEN [Concomitant]
     Indication: PRODUCT USED FOR UNKNOWN INDICATION
     Dosage: 60 MG DAILY
     Route: 048
     Dates: start: 20110409, end: 20110413

REACTIONS (1)
  - RESTLESSNESS [None]
